FAERS Safety Report 5573149-8 (Version None)
Quarter: 2007Q4

REPORT INFORMATION
  Report Type: 
  Country: None (occurrence: None)
  Receive Date: 20071220
  Receipt Date: 20071203
  Transmission Date: 20080405
  Serious: Yes (Hospitalization)
  Sender: FDA-Public Use
  Company Number: DSM-2007-00911

PATIENT
  Age: 38 Year
  Sex: Male
  Weight: 95 kg

DRUGS (4)
  1. OLMESARTAN MEDOXOMIL [Suspect]
     Indication: HYPERTENSION
     Dosage: 40 MG (40 MG,1 IN 1 D),ORAL
     Route: 048
     Dates: start: 20071101, end: 20071117
  2. ENAP(ENALAPRIL) [Concomitant]
  3. INDAP(INDAPAMIDE) [Concomitant]
  4. CAPOTEN [Concomitant]

REACTIONS (4)
  - ANGINA PECTORIS [None]
  - CHEST PAIN [None]
  - CORONARY ARTERY DISEASE [None]
  - HYPERTENSION [None]
